FAERS Safety Report 16112670 (Version 3)
Quarter: 2019Q2

REPORT INFORMATION
  Report Type: Spontaneous
  Country: US (occurrence: US)
  Receive Date: 20190325
  Receipt Date: 20190502
  Transmission Date: 20190711
  Serious: No
  Sender: FDA-Public Use
  Company Number: US-GILEAD-2019-0396801

PATIENT
  Age: 65 Year
  Sex: Male
  Weight: 120.64 kg

DRUGS (8)
  1. ELIQUIS [Concomitant]
     Active Substance: APIXABAN
  2. TESTOSTERONE CYPIONATE. [Concomitant]
     Active Substance: TESTOSTERONE CYPIONATE
  3. METOPROLOL. [Concomitant]
     Active Substance: METOPROLOL
  4. METOLAZONE. [Concomitant]
     Active Substance: METOLAZONE
  5. TRUVADA [Suspect]
     Active Substance: EMTRICITABINE\TENOFOVIR DISOPROXIL FUMARATE
     Indication: PROPHYLAXIS AGAINST HIV INFECTION
     Dosage: 1 DF
     Route: 048
     Dates: start: 20170926, end: 20180915
  6. LISINOPRIL. [Concomitant]
     Active Substance: LISINOPRIL
  7. LASIX [Concomitant]
     Active Substance: FUROSEMIDE
  8. OMEPRAZOLE. [Concomitant]
     Active Substance: OMEPRAZOLE

REACTIONS (2)
  - Blood creatinine increased [Recovering/Resolving]
  - Renal impairment [Recovering/Resolving]

NARRATIVE: CASE EVENT DATE: 20180608
